FAERS Safety Report 6138212-1 (Version None)
Quarter: 2009Q1

REPORT INFORMATION
  Report Type: 
  Country: None (occurrence: None)
  Receive Date: 20090331
  Receipt Date: 20090324
  Transmission Date: 20090719
  Serious: Yes (Other)
  Sender: FDA-Public Use
  Company Number: A0774821A

PATIENT
  Age: 69 Year
  Sex: Male

DRUGS (4)
  1. AVODART [Suspect]
     Indication: BENIGN PROSTATIC HYPERPLASIA
     Dosage: .5MG PER DAY
     Route: 048
     Dates: start: 20090201
  2. FLOMAX [Concomitant]
  3. M.V.I. [Concomitant]
  4. ASPIRIN [Concomitant]

REACTIONS (5)
  - DIZZINESS [None]
  - HYPOGLYCAEMIA [None]
  - IMPULSIVE BEHAVIOUR [None]
  - MUSCULAR WEAKNESS [None]
  - SOMNOLENCE [None]
